FAERS Safety Report 4532693-2 (Version None)
Quarter: 2004Q4

REPORT INFORMATION
  Report Type: 
  Country: None (occurrence: None)
  Receive Date: 20041220
  Receipt Date: 20041220
  Transmission Date: 20050328
  Serious: No
  Sender: FDA-Public Use
  Company Number: None

PATIENT
  Age: 76 Year
  Sex: Female
  Weight: 44.9061 kg

DRUGS (2)
  1. GEMCITABINE [Suspect]
     Indication: PANCREATIC CARCINOMA
     Dosage: 1400
     Dates: start: 20041216
  2. CETUXIMAB [Suspect]
     Dosage: 350
     Dates: start: 20041216

REACTIONS (3)
  - NAUSEA [None]
  - PAIN [None]
  - VOMITING [None]
